FAERS Safety Report 9639007 (Version 1)
Quarter: 2013Q4

REPORT INFORMATION
  Report Type: Spontaneous
  Country: GB (occurrence: None)
  Receive Date: 20131018
  Receipt Date: 20131018
  Transmission Date: 20140711
  Serious: Yes (Hospitalization)
  Sender: FDA-Public Use
  Company Number: SYM-2013-11445

PATIENT
  Age: 55 Year
  Sex: Male

DRUGS (4)
  1. DICLOFENAC (DICLOFENAC) [Suspect]
  2. PARACETAMOL [Suspect]
  3. DIHYDROCODEINE [Suspect]
  4. ALCOHOL [Suspect]

REACTIONS (7)
  - Respiratory depression [None]
  - Overdose [None]
  - Intentional overdose [None]
  - Haemoglobin decreased [None]
  - Erosive duodenitis [None]
  - Oesophagitis [None]
  - Large intestine perforation [None]
